FAERS Safety Report 6891395-8 (Version None)
Quarter: 2010Q3

REPORT INFORMATION
  Report Type: 
  Country: None (occurrence: None)
  Receive Date: 20100731
  Receipt Date: 20060412
  Transmission Date: 20110219
  Serious: No
  Sender: FDA-Public Use
  Company Number: US-PFIZER INC-2006050827

PATIENT
  Sex: Male
  Weight: 102.06 kg

DRUGS (11)
  1. NEURONTIN [Suspect]
     Indication: NEURALGIA
     Route: 065
  2. LYRICA [Suspect]
     Indication: NEURALGIA
     Route: 048
     Dates: start: 20060101
  3. GLUCOTROL [Concomitant]
     Route: 065
  4. VYTORIN [Concomitant]
     Route: 065
  5. LOTREL [Concomitant]
     Route: 065
  6. OXYCONTIN [Concomitant]
     Route: 065
  7. GLUCOPHAGE [Concomitant]
     Route: 065
  8. COREG [Concomitant]
     Route: 065
  9. KLONOPIN [Concomitant]
     Route: 065
  10. ZANAFLEX [Concomitant]
     Route: 065
  11. ZOCOR [Concomitant]
     Route: 065

REACTIONS (13)
  - BALANCE DISORDER [None]
  - BLOOD GLUCOSE DECREASED [None]
  - BONE PAIN [None]
  - CHILLS [None]
  - DRUG INEFFECTIVE [None]
  - FATIGUE [None]
  - FEELING ABNORMAL [None]
  - FEELING HOT [None]
  - IMPAIRED DRIVING ABILITY [None]
  - INSOMNIA [None]
  - PAIN [None]
  - SLEEP DISORDER [None]
  - SOMNOLENCE [None]
